FAERS Safety Report 4638523-2 (Version None)
Quarter: 2005Q2

REPORT INFORMATION
  Report Type: 
  Country: None (occurrence: None)
  Receive Date: 20050418
  Receipt Date: 20050418
  Transmission Date: 20051028
  Serious: No
  Sender: FDA-Public Use
  Company Number: None

PATIENT
  Sex: Male
  Weight: 76 kg

DRUGS (3)
  1. CYTARABINE [Suspect]
     Indication: ACUTE MYELOID LEUKAEMIA
     Dosage: SEE IMAGE
     Route: 042
     Dates: start: 20041230
  2. DAUNORUBICIN HCL [Suspect]
     Dosage: SEE IMAGE
     Route: 042
  3. AMPHOTERICIN B [Concomitant]

REACTIONS (23)
  - AGITATION [None]
  - BALANCE DISORDER [None]
  - BLOOD CULTURE POSITIVE [None]
  - COUGH [None]
  - CULTURE WOUND POSITIVE [None]
  - DELIRIUM [None]
  - DYSPNOEA [None]
  - FALL [None]
  - FATIGUE [None]
  - FUNGAL INFECTION [None]
  - GRAM STAIN POSITIVE [None]
  - HISTOPLASMOSIS [None]
  - HYPOXIA [None]
  - LUNG INFILTRATION [None]
  - MENTAL STATUS CHANGES [None]
  - OXYGEN SATURATION DECREASED [None]
  - PNEUMONIA FUNGAL [None]
  - PYREXIA [None]
  - RENAL FAILURE [None]
  - SKIN DISORDER [None]
  - SKIN LACERATION [None]
  - STAPHYLOCOCCAL INFECTION [None]
  - WHEEZING [None]
